FAERS Safety Report 9893039 (Version 2)
Quarter: 2014Q1

REPORT INFORMATION
  Report Type: Spontaneous
  Country: ES (occurrence: ES)
  Receive Date: 20140213
  Receipt Date: 20140224
  Transmission Date: 20141002
  Serious: Yes (Death, Other)
  Sender: FDA-Public Use
  Company Number: ES-BEH-2014040532

PATIENT
  Age: 2 Month
  Sex: Male

DRUGS (3)
  1. IVIG [Suspect]
     Indication: COMBINED IMMUNODEFICIENCY
  2. COTRIMOXAZOLE [Suspect]
     Indication: COMBINED IMMUNODEFICIENCY
  3. BROAD-SPECTRUM [Suspect]
     Indication: COMBINED IMMUNODEFICIENCY

REACTIONS (1)
  - Drug ineffective [Fatal]
